FAERS Safety Report 12548792 (Version 1)
Quarter: 2016Q3

REPORT INFORMATION
  Report Type: Spontaneous
  Country: US (occurrence: US)
  Receive Date: 20160712
  Receipt Date: 20160712
  Transmission Date: 20161109
  Serious: No
  Sender: FDA-Public Use
  Company Number: US-GLAXOSMITHKLINE-US2016098076

PATIENT
  Sex: Female

DRUGS (6)
  1. COZAAR [Concomitant]
     Active Substance: LOSARTAN POTASSIUM
  2. NORVASC [Concomitant]
     Active Substance: AMLODIPINE BESYLATE
  3. SINGULAIR [Concomitant]
     Active Substance: MONTELUKAST SODIUM
  4. ZETIA [Concomitant]
     Active Substance: EZETIMIBE
  5. GEMFIBROZIL. [Concomitant]
     Active Substance: GEMFIBROZIL
  6. OMEGA-3-ACID ETHYL ESTERS CAPSULE [Suspect]
     Active Substance: OMEGA-3-ACID ETHYL ESTERS
     Indication: BLOOD TRIGLYCERIDES
     Dosage: 2 DF, BID
     Route: 048
     Dates: start: 201401, end: 201406

REACTIONS (2)
  - Blood triglycerides increased [Recovered/Resolved]
  - Drug ineffective [Recovered/Resolved]
